FAERS Safety Report 7388635-8 (Version None)
Quarter: 2011Q2

REPORT INFORMATION
  Report Type: 
  Country: None (occurrence: None)
  Receive Date: 20110401
  Receipt Date: 20110318
  Transmission Date: 20111010
  Serious: Yes (Hospitalization)
  Sender: FDA-Public Use
  Company Number: DE-GENENTECH-312330

PATIENT
  Age: 77 Year
  Sex: Female

DRUGS (4)
  1. LUCENTIS [Suspect]
     Dosage: UNK
     Route: 031
     Dates: start: 20110101
  2. LUCENTIS [Suspect]
     Dosage: UNK
     Route: 031
     Dates: start: 20110201
  3. LUCENTIS [Suspect]
     Indication: MACULAR DEGENERATION
     Dosage: UNK
     Route: 031
     Dates: start: 20090101
  4. LUCENTIS [Suspect]
     Dosage: UNK
     Route: 031
     Dates: start: 20101130

REACTIONS (2)
  - SYNCOPE [None]
  - SICK SINUS SYNDROME [None]
